FAERS Safety Report 16972454 (Version 11)
Quarter: 2023Q2

REPORT INFORMATION
  Report Type: Report from Study
  Country: FR (occurrence: FR)
  Receive Date: 20191029
  Receipt Date: 20230608
  Transmission Date: 20230721
  Serious: Yes (Death, Other)
  Sender: FDA-Public Use
  Company Number: FR-ABBVIE-19K-056-2976437-00

PATIENT
  Age: 79 Year
  Sex: Male
  Weight: 69 kg

DRUGS (16)
  1. VENETOCLAX [Suspect]
     Active Substance: VENETOCLAX
     Indication: Chronic lymphocytic leukaemia
     Dosage: 50 MILLIGRAM
     Route: 048
     Dates: start: 20190531, end: 20190612
  2. VENETOCLAX [Suspect]
     Active Substance: VENETOCLAX
     Indication: Chronic lymphocytic leukaemia
     Dosage: 200 MILLIGRAM
     Route: 048
     Dates: start: 20190620, end: 20190718
  3. VENETOCLAX [Suspect]
     Active Substance: VENETOCLAX
     Indication: Chronic lymphocytic leukaemia
     Dosage: 100 MILLIGRAM
     Route: 048
     Dates: start: 20190613, end: 20190619
  4. VENETOCLAX [Suspect]
     Active Substance: VENETOCLAX
     Indication: Chronic lymphocytic leukaemia
     Dosage: 20 MILLIGRAM
     Route: 048
     Dates: start: 20190519, end: 20190530
  5. VENETOCLAX [Suspect]
     Active Substance: VENETOCLAX
     Indication: Chronic lymphocytic leukaemia
     Dosage: 400 MILLIGRAM
     Route: 048
     Dates: start: 20190719, end: 20191206
  6. BACTRIM [Concomitant]
     Active Substance: SULFAMETHOXAZOLE\TRIMETHOPRIM
     Indication: Infection prophylaxis
     Route: 065
     Dates: start: 20190519
  7. VALACYCLOVIR HYDROCHLORIDE [Concomitant]
     Active Substance: VALACYCLOVIR HYDROCHLORIDE
     Indication: Infection prophylaxis
     Route: 065
     Dates: start: 20190519
  8. FASTURTEC [Concomitant]
     Active Substance: RASBURICASE
     Indication: Prophylaxis
     Route: 065
     Dates: start: 20190519
  9. TRAMADOL HYDROCHLORIDE [Concomitant]
     Active Substance: TRAMADOL HYDROCHLORIDE
     Indication: Pain
     Dosage: AS NEEDED
     Route: 065
     Dates: start: 20190519
  10. IMOVANE [Concomitant]
     Active Substance: ZOPICLONE
     Indication: Richter^s syndrome
     Route: 065
     Dates: start: 20190604
  11. ACETAMINOPHEN [Concomitant]
     Active Substance: ACETAMINOPHEN
     Indication: Pain
     Dosage: AS NEEDED
     Route: 065
     Dates: start: 20190615
  12. RITUXIMAB [Concomitant]
     Active Substance: RITUXIMAB
     Indication: Chronic lymphocytic leukaemia
     Route: 065
     Dates: start: 20190620, end: 20190926
  13. IPILIMUMAB [Concomitant]
     Active Substance: IPILIMUMAB
     Indication: Neoplasm malignant
     Route: 065
     Dates: start: 20190729
  14. LOVENOX [Concomitant]
     Active Substance: ENOXAPARIN SODIUM
     Indication: Prophylaxis
     Route: 065
     Dates: start: 20190721
  15. AUGMENTIN [Concomitant]
     Active Substance: AMOXICILLIN\CLAVULANATE POTASSIUM
     Indication: Richter^s syndrome
     Dates: start: 20190601, end: 20190801
  16. CEMIPLIMAB [Concomitant]
     Active Substance: CEMIPLIMAB
     Indication: Neoplasm malignant
     Route: 065
     Dates: start: 20190729

REACTIONS (26)
  - Hypercalcaemia of malignancy [Not Recovered/Not Resolved]
  - Death [Fatal]
  - Squamous cell carcinoma [Not Recovered/Not Resolved]
  - Off label use [Unknown]
  - Anaemia [Not Recovered/Not Resolved]
  - Oral disorder [Recovered/Resolved]
  - Haematoma [Not Recovered/Not Resolved]
  - Tumour lysis syndrome [Recovered/Resolved]
  - Pyrexia [Not Recovered/Not Resolved]
  - Blood lactate dehydrogenase increased [Recovered/Resolved]
  - Tumour lysis syndrome [Recovered/Resolved]
  - Neutropenia [Recovered/Resolved]
  - Neutropenia [Not Recovered/Not Resolved]
  - Lymphopenia [Unknown]
  - Leukopenia [Unknown]
  - Erysipelas [Recovered/Resolved]
  - Nausea [Not Recovered/Not Resolved]
  - Nasal congestion [Recovering/Resolving]
  - Pyrexia [Recovered/Resolved]
  - Weight decreased [Not Recovered/Not Resolved]
  - Asthenia [Not Recovered/Not Resolved]
  - Pain [Not Recovered/Not Resolved]
  - Thrombocytopenia [Recovered/Resolved]
  - Achromobacter infection [Recovered/Resolved]
  - Squamous cell carcinoma [Not Recovered/Not Resolved]
  - Nervous system disorder [Recovered/Resolved]

NARRATIVE: CASE EVENT DATE: 20190501
